FAERS Safety Report 18594287 (Version 2)
Quarter: 2020Q4

REPORT INFORMATION
  Report Type: Report from Study
  Country: IT (occurrence: IT)
  Receive Date: 20201209
  Receipt Date: 20201209
  Transmission Date: 20210114
  Serious: Yes (Other)
  Sender: FDA-Public Use
  Company Number: IT-SHIONOGI, INC-2020000574

PATIENT

DRUGS (12)
  1. DEXAMETHASONE. [Concomitant]
     Active Substance: DEXAMETHASONE
     Indication: RESPIRATORY FAILURE
     Dosage: 6 MG, QD
     Route: 042
     Dates: start: 20201116
  2. FUROSEMIDE. [Concomitant]
     Active Substance: FUROSEMIDE
     Indication: OEDEMA
     Dosage: 10 MG, EVERY 12 HOURS
     Route: 042
     Dates: start: 20201128
  3. FETROJA [Suspect]
     Active Substance: CEFIDEROCOL SULFATE TOSYLATE
     Indication: ACINETOBACTER BACTERAEMIA
  4. ALBUMIN [Concomitant]
     Active Substance: ALBUMIN HUMAN
     Indication: OEDEMA
     Dosage: 19 G, QD
     Route: 042
     Dates: start: 20201125
  5. FETROJA [Suspect]
     Active Substance: CEFIDEROCOL SULFATE TOSYLATE
     Indication: ACINETOBACTER SEPSIS
     Dosage: 2 G, EVERY 8 HOURS
     Route: 042
     Dates: start: 20201127
  6. ALBUMIN [Concomitant]
     Active Substance: ALBUMIN HUMAN
     Indication: MALNUTRITION
  7. DEXAMETHASONE. [Concomitant]
     Active Substance: DEXAMETHASONE
     Dosage: DOSAGE REDUCED
     Route: 042
     Dates: start: 20201128
  8. LEVETIRACETAM. [Concomitant]
     Active Substance: LEVETIRACETAM
     Indication: POST-TRAUMATIC EPILEPSY
     Dosage: 500 MG, BID
     Route: 042
     Dates: start: 202009
  9. PANTOPRAZOLE [Concomitant]
     Active Substance: PANTOPRAZOLE
     Indication: GASTRIC PERFORATION
     Dosage: 40 MG, QD
     Route: 042
     Dates: start: 20201116
  10. FONDAPARINUX [Concomitant]
     Active Substance: FONDAPARINUX
     Indication: FIBRIN D DIMER INCREASED
     Dosage: 5 MG, QD
     Route: 042
     Dates: start: 20201116
  11. ALBUMIN [Concomitant]
     Active Substance: ALBUMIN HUMAN
     Indication: HYPOALBUMINAEMIA
  12. FONDAPARINUX [Concomitant]
     Active Substance: FONDAPARINUX
     Indication: THROMBOSIS PROPHYLAXIS

REACTIONS (2)
  - Partial seizures [Recovered/Resolved]
  - Hyponatraemia [Unknown]

NARRATIVE: CASE EVENT DATE: 20201127
